FAERS Safety Report 5553658-8 (Version None)
Quarter: 2007Q4

REPORT INFORMATION
  Report Type: 
  Country: None (occurrence: None)
  Receive Date: 20071130
  Receipt Date: 20070809
  Transmission Date: 20080405
  Serious: No
  Sender: FDA-Public Use
  Company Number: 2006PV015026

PATIENT
  Age: 72 Year
  Sex: Female
  Weight: 85.3 kg

DRUGS (9)
  1. EXENATIDE (EXENATIDE) PEN, DISPOSABLE [Suspect]
     Indication: INSULIN-REQUIRING TYPE II DIABETES MELLITUS
     Dosage: 5 UG, 2/D, SUBCUTANEOUS; 10 UG, 2/D, SUBCUTANEOUS; 10 UG, DAILY (1/D), SUBCUTANEOUS
     Route: 058
     Dates: start: 20051201, end: 20060418
  2. EXENATIDE (EXENATIDE) PEN, DISPOSABLE [Suspect]
     Indication: INSULIN-REQUIRING TYPE II DIABETES MELLITUS
     Dosage: 5 UG, 2/D, SUBCUTANEOUS; 10 UG, 2/D, SUBCUTANEOUS; 10 UG, DAILY (1/D), SUBCUTANEOUS
     Route: 058
     Dates: start: 20060418, end: 20070701
  3. EXENATIDE (EXENATIDE) PEN, DISPOSABLE [Suspect]
     Indication: INSULIN-REQUIRING TYPE II DIABETES MELLITUS
     Dosage: 5 UG, 2/D, SUBCUTANEOUS; 10 UG, 2/D, SUBCUTANEOUS; 10 UG, DAILY (1/D), SUBCUTANEOUS
     Route: 058
     Dates: start: 20051101
  4. HUMALOG [Concomitant]
  5. HUMALOG [Concomitant]
  6. HUMULIN N [Concomitant]
  7. HUMULIN N [Concomitant]
  8. ... [Concomitant]
  9. ... [Concomitant]

REACTIONS (2)
  - FLATULENCE [None]
  - WEIGHT DECREASED [None]
